FAERS Safety Report 11347627 (Version 1)
Quarter: 2015Q3

REPORT INFORMATION
  Report Type: Spontaneous
  Country: US (occurrence: US)
  Receive Date: 20150803
  Receipt Date: 20150803
  Transmission Date: 20151125
  Serious: No
  Sender: FDA-Public Use
  Company Number: US-ELI_LILLY_AND_COMPANY-US201108008017

PATIENT
  Sex: Male
  Weight: 68.03 kg

DRUGS (2)
  1. STRATTERA [Suspect]
     Active Substance: ATOMOXETINE HYDROCHLORIDE
     Indication: ATTENTION DEFICIT/HYPERACTIVITY DISORDER
     Dosage: 40 MG, QD
  2. STRATTERA [Suspect]
     Active Substance: ATOMOXETINE HYDROCHLORIDE
     Dosage: 18 MG, QD

REACTIONS (4)
  - Abdominal discomfort [Not Recovered/Not Resolved]
  - Scrotal pain [Not Recovered/Not Resolved]
  - Penile size reduced [Not Recovered/Not Resolved]
  - Scrotal swelling [Not Recovered/Not Resolved]
